FAERS Safety Report 4425180-3 (Version None)
Quarter: 2004Q3

REPORT INFORMATION
  Report Type: 
  Country: None (occurrence: None)
  Receive Date: 20040811
  Receipt Date: 20040811
  Transmission Date: 20050211
  Serious: Yes (Hospitalization)
  Sender: FDA-Public Use
  Company Number: None

PATIENT
  Age: 78 Year
  Sex: Male
  Weight: 84 kg

DRUGS (11)
  1. REOPRO [Suspect]
     Indication: RENAL ARTERY STENOSIS
     Dosage: 21 MG BOLUS
     Route: 040
     Dates: start: 20040330
  2. PLACEBO [Suspect]
     Indication: RENAL ARTERY STENOSIS
     Dosage: 12 HOUR INFUSION
     Dates: start: 20040330, end: 20040331
  3. ASPIRIN [Concomitant]
  4. PLAVIX [Concomitant]
  5. LOPRESSOR [Concomitant]
  6. NORVASC [Concomitant]
  7. VASOTEC [Concomitant]
  8. HYDROCHLOROTHIAZIDE [Concomitant]
  9. SULAZINE [Concomitant]
  10. ALLOPURINOL [Concomitant]
  11. FOLIC ACID [Concomitant]

REACTIONS (9)
  - FEMORAL ARTERIAL STENOSIS [None]
  - GROIN PAIN [None]
  - HAEMATOMA [None]
  - INTERMITTENT CLAUDICATION [None]
  - ISCHAEMIA [None]
  - PAIN IN EXTREMITY [None]
  - POST PROCEDURAL PAIN [None]
  - SYNCOPE [None]
  - VASCULAR PSEUDOANEURYSM [None]
